FAERS Safety Report 7450446-2 (Version None)
Quarter: 2011Q2

REPORT INFORMATION
  Report Type: 
  Country: None (occurrence: None)
  Receive Date: 20110502
  Receipt Date: 20110427
  Transmission Date: 20111010
  Serious: Yes (Other)
  Sender: FDA-Public Use
  Company Number: GB-BRISTOL-MYERS SQUIBB COMPANY-15704695

PATIENT

DRUGS (1)
  1. ABILIFY [Suspect]

REACTIONS (2)
  - DYSPHAGIA [None]
  - GASTROINTESTINAL TUBE INSERTION [None]
